FAERS Safety Report 13374842 (Version 1)
Quarter: 2017Q1

REPORT INFORMATION
  Report Type: Report from Study
  Country: US (occurrence: US)
  Receive Date: 20170327
  Receipt Date: 20170327
  Transmission Date: 20170429
  Serious: Yes (Other)
  Sender: FDA-Public Use
  Company Number: US-VIFOR (INTERNATIONAL) INC.-VIT-2017-03090

PATIENT
  Sex: Male

DRUGS (1)
  1. VELTASSA [Suspect]
     Active Substance: PATIROMER
     Indication: PRODUCT USED FOR UNKNOWN INDICATION
     Dates: start: 201701

REACTIONS (4)
  - Cardiac operation [Unknown]
  - Catheterisation cardiac [Unknown]
  - Cataract operation [Unknown]
  - Drug administration error [Unknown]

NARRATIVE: CASE EVENT DATE: 2017
